FAERS Safety Report 8237020-5 (Version None)
Quarter: 2012Q1

REPORT INFORMATION
  Report Type: 
  Country: None (occurrence: None)
  Receive Date: 20120327
  Receipt Date: 20120322
  Transmission Date: 20120608
  Serious: Yes (Other)
  Sender: FDA-Public Use
  Company Number: PHHY2012JP025566

PATIENT
  Age: 59 Year
  Sex: Female

DRUGS (3)
  1. CYCLOPHOSPHAMIDE [Concomitant]
     Dosage: UNK
     Route: 041
  2. ZOMETA [Suspect]
     Indication: METASTASES TO BONE
     Dosage: 4 MG, DAILY
     Route: 041
     Dates: start: 20100930, end: 20111226
  3. TAXOTERE [Concomitant]
     Dosage: UNK
     Route: 041

REACTIONS (4)
  - SENSORY DISTURBANCE [None]
  - OSTEONECROSIS OF JAW [None]
  - GINGIVAL ATROPHY [None]
  - EXPOSED BONE IN JAW [None]
